FAERS Safety Report 11706343 (Version 1)
Quarter: 2015Q4

REPORT INFORMATION
  Report Type: Report from Study
  Country: US (occurrence: US)
  Receive Date: 20151106
  Receipt Date: 20151106
  Transmission Date: 20160304
  Serious: Yes (Hospitalization, Other)
  Sender: FDA-Public Use
  Company Number: US-VIIV HEALTHCARE LIMITED-US2015GSK158672

PATIENT
  Age: 0 Year
  Sex: Male

DRUGS (3)
  1. ZIDOVUDINE. [Suspect]
     Active Substance: ZIDOVUDINE
     Indication: HIV INFECTION
     Dosage: UNK
     Route: 064
     Dates: start: 20150226
  2. PREZISTA [Suspect]
     Active Substance: DARUNAVIR ETHANOLATE
     Indication: HIV INFECTION
     Dosage: UNK
     Route: 064
     Dates: start: 20150427
  3. COMPLERA [Suspect]
     Active Substance: EMTRICITABINE\RILPIVIRINE HYDROCHLORIDE\TENOFOVIR DISOPROXIL FUMARATE
     Indication: HIV INFECTION
     Dosage: 1 TAB/CAPS
     Route: 064
     Dates: start: 20150226

REACTIONS (5)
  - Jaundice neonatal [Unknown]
  - Foetal exposure during pregnancy [Unknown]
  - Weight decrease neonatal [Unknown]
  - Meconium in amniotic fluid [Recovered/Resolved]
  - Infantile vomiting [Recovered/Resolved]

NARRATIVE: CASE EVENT DATE: 20150226
